FAERS Safety Report 7493158-1 (Version None)
Quarter: 2011Q2

REPORT INFORMATION
  Report Type: 
  Country: None (occurrence: None)
  Receive Date: 20110520
  Receipt Date: 20110506
  Transmission Date: 20111010
  Serious: Yes (Other)
  Sender: FDA-Public Use
  Company Number: CA-JNJFOC-20110504462

PATIENT
  Age: 60 Year
  Sex: Male

DRUGS (2)
  1. REMICADE [Suspect]
     Indication: CROHN'S DISEASE
     Dosage: 1 INFUSION
     Route: 042
     Dates: start: 20110401
  2. REMICADE [Suspect]
     Route: 042

REACTIONS (3)
  - INTESTINAL STENOSIS [None]
  - DRUG EFFECT DECREASED [None]
  - HERPES ZOSTER [None]
